FAERS Safety Report 21302210 (Version 4)
Quarter: 2022Q4

REPORT INFORMATION
  Report Type: Spontaneous
  Country: IT (occurrence: IT)
  Receive Date: 20220907
  Receipt Date: 20221104
  Transmission Date: 20230112
  Serious: Yes (Death, Hospitalization, Other)
  Sender: FDA-Public Use
  Company Number: IT-ALXN-A202210564

PATIENT
  Age: 43 Year
  Sex: Female
  Weight: 60 kg

DRUGS (6)
  1. SOLIRIS [Suspect]
     Active Substance: ECULIZUMAB
     Indication: Atypical haemolytic uraemic syndrome
     Dosage: 900 MG, QW
     Route: 042
     Dates: start: 20220809
  2. ALBUMIN HUMAN [Concomitant]
     Active Substance: ALBUMIN HUMAN
     Indication: Product used for unknown indication
     Dosage: 3 UNITS, QD
     Route: 065
  3. ANTRA                              /00661201/ [Concomitant]
     Indication: Product used for unknown indication
     Dosage: 40 MG, QD
     Route: 065
  4. CALCIUM CHLORIDE [Concomitant]
     Active Substance: CALCIUM CHLORIDE
     Indication: Product used for unknown indication
     Dosage: 1 DF, BID
     Route: 065
  5. EMPRESSIN [Concomitant]
     Indication: Product used for unknown indication
     Dosage: 2 ML, Q1H
     Route: 042
  6. NORADRENALINE                      /00127501/ [Concomitant]
     Indication: Product used for unknown indication
     Dosage: 0.1 ?G/KG, PER MINUTE
     Route: 042

REACTIONS (2)
  - Multiple organ dysfunction syndrome [Fatal]
  - Postpartum haemorrhage [Fatal]

NARRATIVE: CASE EVENT DATE: 20220809
